FAERS Safety Report 9128155 (Version 1)
Quarter: 2013Q1

REPORT INFORMATION
  Report Type: Spontaneous
  Country: US (occurrence: US)
  Receive Date: 20130228
  Receipt Date: 20130228
  Transmission Date: 20140127
  Serious: No
  Sender: FDA-Public Use
  Company Number: US-BRISTOL-MYERS SQUIBB COMPANY-16837536

PATIENT
  Sex: 0

DRUGS (1)
  1. BICNU [Suspect]
     Indication: BONE MARROW TRANSPLANT
     Route: 042

REACTIONS (1)
  - Wrong technique in drug usage process [Unknown]
